FAERS Safety Report 4578410-1 (Version None)
Quarter: 2005Q1

REPORT INFORMATION
  Report Type: 
  Country: None (occurrence: None)
  Receive Date: 20050209
  Receipt Date: 20050127
  Transmission Date: 20050727
  Serious: Yes (Death)
  Sender: FDA-Public Use
  Company Number: 2005-00137

PATIENT
  Age: 68 Year
  Sex: Female
  Weight: 70 kg

DRUGS (13)
  1. VELCADE [Suspect]
     Indication: MULTIPLE MYELOMA
     Dosage: 1.20 MG, IV BOLUS
     Route: 040
     Dates: start: 20050124, end: 20050124
  2. DURAGESIC [Concomitant]
  3. REPAGLINIDE (REPAGLINIDE) [Concomitant]
  4. PHOSLO [Concomitant]
  5. AVAPRO [Concomitant]
  6. NORVASC [Concomitant]
  7. CARDURA [Concomitant]
  8. LOPERAMIDE HCL [Concomitant]
  9. QUININE (QUININE) [Concomitant]
  10. SODIUM BICARBONATE IN PLASTIC CONTAINER [Concomitant]
  11. ZOMETA [Concomitant]
  12. DOLASETRON (DOLASETRON) [Concomitant]
  13. EPOGEN [Concomitant]

REACTIONS (3)
  - ASTHENIA [None]
  - FALL [None]
  - TREMOR [None]
